FAERS Safety Report 10301955 (Version 2)
Quarter: 2014Q3

REPORT INFORMATION
  Report Type: Spontaneous
  Country: US (occurrence: None)
  Receive Date: 20140709
  Receipt Date: 20140804
  Transmission Date: 20150326
  Serious: Yes (Hospitalization)
  Sender: FDA-Public Use
  Company Number: 2014SUP00014

PATIENT
  Age: 12 Year
  Sex: Male
  Weight: 49.9 kg

DRUGS (1)
  1. OXTELLAR XR [Suspect]
     Active Substance: OXCARBAZEPINE
     Indication: EPILEPSY
     Route: 048
     Dates: start: 2013

REACTIONS (11)
  - Weight decreased [None]
  - Convulsion [None]
  - Aspiration [None]
  - Sinus tachycardia [None]
  - Respiratory distress [None]
  - Status epilepticus [None]
  - Tympanic membrane hyperaemia [None]
  - Pneumonia aspiration [None]
  - Nystagmus [None]
  - Atelectasis [None]
  - Lung infiltration [None]

NARRATIVE: CASE EVENT DATE: 20140620
